FAERS Safety Report 17279032 (Version 3)
Quarter: 2020Q3

REPORT INFORMATION
  Report Type: Spontaneous
  Country: GB (occurrence: GB)
  Receive Date: 20200116
  Receipt Date: 20200805
  Transmission Date: 20201102
  Serious: Yes (Hospitalization)
  Sender: FDA-Public Use
  Company Number: NVSC2020GB007475

PATIENT
  Age: 58 Year
  Sex: Female

DRUGS (85)
  1. CLARITHROMYCIN. [Concomitant]
     Active Substance: CLARITHROMYCIN
     Dosage: 500 MG
     Route: 042
     Dates: start: 20190611, end: 20190611
  2. ZOMORPH [Concomitant]
     Active Substance: MORPHINE SULFATE
     Indication: PRODUCT USED FOR UNKNOWN INDICATION
     Dosage: 60 MG, QD
     Route: 048
     Dates: start: 201611
  3. CLARITHROMYCIN. [Concomitant]
     Active Substance: CLARITHROMYCIN
     Indication: PRODUCT USED FOR UNKNOWN INDICATION
     Dosage: 1000 MG, QD
     Route: 065
     Dates: start: 20190611, end: 20190611
  4. FUROSEMIDE. [Concomitant]
     Active Substance: FUROSEMIDE
     Route: 048
     Dates: start: 20200626
  5. CLINDAMYCIN. [Concomitant]
     Active Substance: CLINDAMYCIN
     Indication: CELLULITIS
     Dosage: 1.2 G
     Route: 042
     Dates: start: 20200206, end: 20200212
  6. ZANAMIVIR [Concomitant]
     Active Substance: ZANAMIVIR
     Indication: PRODUCT USED FOR UNKNOWN INDICATION
     Dosage: 10 MG
     Route: 045
     Dates: start: 20191218, end: 20191219
  7. AMOXICILLIN. [Concomitant]
     Active Substance: AMOXICILLIN
     Dosage: 1 G
     Route: 048
     Dates: start: 20200626, end: 20200628
  8. AMOXICILLIN. [Concomitant]
     Active Substance: AMOXICILLIN
     Dosage: 500 MG
     Route: 048
     Dates: start: 20180701, end: 20180711
  9. GABAPENTIN. [Concomitant]
     Active Substance: GABAPENTIN
     Dosage: 1.2 G
     Route: 048
  10. CYCLIZINE [Concomitant]
     Active Substance: CYCLIZINE
     Indication: PRODUCT USED FOR UNKNOWN INDICATION
     Dosage: 150 MG, QD
     Route: 048
     Dates: start: 201507
  11. PROMETHAZINE HYDROCHLORIDE. [Concomitant]
     Active Substance: PROMETHAZINE HYDROCHLORIDE
     Dosage: 50 MG
     Route: 048
  12. LEVOTHYROXINE. [Concomitant]
     Active Substance: LEVOTHYROXINE
     Indication: PRODUCT USED FOR UNKNOWN INDICATION
     Dosage: 50 UG, QD
     Route: 048
     Dates: start: 20200311
  13. RIFAMPICIN [Concomitant]
     Active Substance: RIFAMPIN
     Indication: PRODUCT USED FOR UNKNOWN INDICATION
     Dosage: 300 MG
     Route: 048
     Dates: start: 20200212, end: 20200212
  14. BLOOD [Concomitant]
     Active Substance: WHOLE BLOOD
     Indication: PRODUCT USED FOR UNKNOWN INDICATION
     Dosage: 3 UNIT
     Route: 042
     Dates: start: 20200613, end: 20200613
  15. TAZOCIN [Concomitant]
     Active Substance: PIPERACILLIN SODIUM\TAZOBACTAM SODIUM
     Indication: PNEUMONIA
     Dosage: 4.5 G
     Route: 042
     Dates: start: 20200202, end: 20200206
  16. FUROSEMIDE. [Concomitant]
     Active Substance: FUROSEMIDE
     Indication: OEDEMA
     Dosage: 40 MG, QD
     Route: 042
     Dates: start: 20200622, end: 20200623
  17. FLUCLOXACILLIN [Concomitant]
     Active Substance: FLUCLOXACILLIN
     Indication: PRODUCT USED FOR UNKNOWN INDICATION
     Dosage: 1 G
     Route: 042
     Dates: start: 20180912, end: 20180915
  18. AROMASIN [Suspect]
     Active Substance: EXEMESTANE
     Indication: BREAST CANCER
     Dosage: 25 MG, QD
     Route: 048
     Dates: start: 20170428, end: 20180110
  19. MORPHINE SULPHATE [Concomitant]
     Active Substance: MORPHINE SULFATE
     Dosage: 40 MG, QD
     Route: 048
     Dates: start: 20171224
  20. AMOXICILLIN. [Concomitant]
     Active Substance: AMOXICILLIN
     Dosage: 500 MG
     Route: 048
     Dates: start: 20190414
  21. LINEZOLID. [Concomitant]
     Active Substance: LINEZOLID
     Indication: CELLULITIS
     Route: 042
     Dates: start: 20200206, end: 20200212
  22. NAPROXEN. [Concomitant]
     Active Substance: NAPROXEN
     Indication: PRODUCT USED FOR UNKNOWN INDICATION
     Dosage: 250 MG
     Route: 048
  23. TAZOCIN [Concomitant]
     Active Substance: PIPERACILLIN SODIUM\TAZOBACTAM SODIUM
     Indication: CELLULITIS
     Route: 042
     Dates: start: 20191221, end: 20191227
  24. TRASTUZUMAB. [Suspect]
     Active Substance: TRASTUZUMAB
     Indication: PRODUCT USED FOR UNKNOWN INDICATION
     Dosage: UNK
     Route: 065
  25. AMOXICILLIN. [Concomitant]
     Active Substance: AMOXICILLIN
     Dosage: 1 G
     Route: 042
     Dates: start: 20200622, end: 20200626
  26. AMOXICILLIN. [Concomitant]
     Active Substance: AMOXICILLIN
     Dosage: 1 G
     Route: 048
     Dates: start: 20191115, end: 20191118
  27. AMOXICILLIN. [Concomitant]
     Active Substance: AMOXICILLIN
     Dosage: 1 G
     Route: 042
     Dates: start: 20191111, end: 20191115
  28. DENOSUMAB [Concomitant]
     Active Substance: DENOSUMAB
     Indication: PRODUCT USED FOR UNKNOWN INDICATION
     Dosage: 120 MG, 10QD
     Route: 058
     Dates: start: 20170604, end: 20170613
  29. DENOSUMAB [Concomitant]
     Active Substance: DENOSUMAB
     Dosage: 120 MG
     Route: 058
     Dates: start: 20170604, end: 20170613
  30. LANSOPRAZOLE. [Concomitant]
     Active Substance: LANSOPRAZOLE
     Indication: PRODUCT USED FOR UNKNOWN INDICATION
     Dosage: 15 MG, QD
     Route: 048
     Dates: start: 2001
  31. DIAZEPAM. [Concomitant]
     Active Substance: DIAZEPAM
     Indication: MUSCULOSKELETAL STIFFNESS
     Dosage: 6 MG, QD
     Route: 048
     Dates: start: 20180105
  32. HYOSCINE BUTYLBROMIDE [Concomitant]
     Active Substance: BUTYLSCOPOLAMINE BROMIDE
     Dosage: 10 MG
     Route: 048
     Dates: start: 20181222
  33. PROMETHAZINE HYDROCHLORIDE. [Concomitant]
     Active Substance: PROMETHAZINE HYDROCHLORIDE
     Indication: PRODUCT USED FOR UNKNOWN INDICATION
     Dosage: 25 MG, QD
     Route: 048
  34. DOXYCYCLINE. [Concomitant]
     Active Substance: DOXYCYCLINE
     Indication: PNEUMONIA
     Dosage: 200 MG
     Route: 048
     Dates: start: 20191223, end: 20191230
  35. FUROSEMIDE. [Concomitant]
     Active Substance: FUROSEMIDE
     Route: 048
     Dates: start: 20191117
  36. INHIXA [Concomitant]
     Active Substance: ENOXAPARIN SODIUM
     Indication: PRODUCT USED FOR UNKNOWN INDICATION
     Dosage: 40 MG, QD
     Route: 058
     Dates: start: 20190610, end: 20190623
  37. MAGNESIUM ASPARTATE [Concomitant]
     Active Substance: MAGNESIUM ASPARTATE
     Indication: PRODUCT USED FOR UNKNOWN INDICATION
     Dosage: 6.5 G
     Route: 048
     Dates: start: 20191111
  38. TRASTUZUMAB RECOMBINANT [Suspect]
     Active Substance: TRASTUZUMAB
     Indication: BREAST CANCER
     Dosage: 600 MG, QMO
     Route: 058
     Dates: start: 20150716, end: 20171222
  39. AMOXICILLIN. [Concomitant]
     Active Substance: AMOXICILLIN
     Indication: OSTEOMYELITIS
     Dosage: 1500 MG, QD
     Route: 048
     Dates: start: 20180701, end: 20180711
  40. DENOSUMAB [Concomitant]
     Active Substance: DENOSUMAB
     Dosage: 120 MG
     Route: 058
     Dates: start: 20180118
  41. CLARITHROMYCIN. [Concomitant]
     Active Substance: CLARITHROMYCIN
     Dosage: 500 MG
     Route: 048
     Dates: start: 20191111, end: 20191118
  42. DIAZEPAM. [Concomitant]
     Active Substance: DIAZEPAM
     Indication: BACK PAIN
     Dosage: UNK
     Route: 065
  43. CYCLIZINE [Concomitant]
     Active Substance: CYCLIZINE
     Dosage: 50 MG
     Route: 048
     Dates: start: 201507
  44. ZOMORPH [Concomitant]
     Active Substance: MORPHINE SULFATE
     Dosage: 30 MG
     Route: 048
     Dates: start: 201611
  45. BLOOD [Concomitant]
     Active Substance: WHOLE BLOOD
     Dosage: 3 UNIT
     Route: 042
     Dates: start: 20200501, end: 20200501
  46. PREDNISOLONE. [Concomitant]
     Active Substance: PREDNISOLONE
     Indication: PRODUCT USED FOR UNKNOWN INDICATION
     Dosage: 30 MG, QD
     Route: 048
     Dates: start: 20200625, end: 20200629
  47. FUROSEMIDE. [Concomitant]
     Active Substance: FUROSEMIDE
     Route: 042
     Dates: start: 20200623, end: 20200626
  48. MEROPENEM. [Concomitant]
     Active Substance: MEROPENEM
     Indication: PRODUCT USED FOR UNKNOWN INDICATION
     Dosage: 1 G
     Route: 042
     Dates: start: 20180813, end: 20180814
  49. FLUCLOXACILLIN [Concomitant]
     Active Substance: FLUCLOXACILLIN
     Route: 048
     Dates: start: 20180910, end: 20180912
  50. FEMARA [Suspect]
     Active Substance: LETROZOLE
     Indication: BREAST CANCER
     Dosage: 2.5 MG, QD
     Route: 048
     Dates: start: 201507, end: 20170427
  51. MORPHINE SULPHATE [Concomitant]
     Active Substance: MORPHINE SULFATE
     Indication: BACK PAIN
     Dosage: 30 MG, QD
     Route: 048
     Dates: start: 201504
  52. AMOXICILLIN. [Concomitant]
     Active Substance: AMOXICILLIN
     Dosage: 1500 MG, QD
     Route: 048
     Dates: start: 20190414
  53. AMOXICILLIN. [Concomitant]
     Active Substance: AMOXICILLIN
     Dosage: 1 G
     Route: 048
     Dates: start: 20191219, end: 20191221
  54. LOPERAMIDE [Concomitant]
     Active Substance: LOPERAMIDE
     Indication: DIARRHOEA
     Dosage: 1 YEARS
     Route: 065
     Dates: start: 201804, end: 2019
  55. CLARITHROMYCIN. [Concomitant]
     Active Substance: CLARITHROMYCIN
     Indication: LOWER RESPIRATORY TRACT INFECTION
     Dosage: 1000 MG, QD (TABLET)
     Route: 048
     Dates: start: 20180701, end: 20180711
  56. CLARITHROMYCIN. [Concomitant]
     Active Substance: CLARITHROMYCIN
     Dosage: 500 MG
     Route: 048
     Dates: start: 20200622, end: 20200622
  57. CLARITHROMYCIN. [Concomitant]
     Active Substance: CLARITHROMYCIN
     Dosage: 500 MG
     Route: 048
     Dates: start: 20191219, end: 20191221
  58. LANSOPRAZOLE. [Concomitant]
     Active Substance: LANSOPRAZOLE
     Dosage: 30 MG
     Route: 048
  59. TINZAPARIN [Concomitant]
     Active Substance: TINZAPARIN
     Dosage: 22000 IU, QD
     Route: 058
     Dates: start: 20200624, end: 20200624
  60. BLOOD [Concomitant]
     Active Substance: WHOLE BLOOD
     Dosage: 2 UNIT
     Route: 042
     Dates: start: 20200622, end: 20200622
  61. COTRIMOXAZOLE [Concomitant]
     Active Substance: SULFAMETHOXAZOLE\TRIMETHOPRIM
     Indication: PRODUCT USED FOR UNKNOWN INDICATION
     Dosage: 1 DF
     Route: 048
     Dates: start: 20181015, end: 20181022
  62. FUROSEMIDE. [Concomitant]
     Active Substance: FUROSEMIDE
     Route: 048
     Dates: start: 20191113, end: 20191116
  63. VANCOMYCIN [Concomitant]
     Active Substance: VANCOMYCIN
     Indication: CELLULITIS
     Dosage: 1.5 G
     Route: 042
     Dates: start: 20200201, end: 20200206
  64. DERMOL [Concomitant]
     Active Substance: BENZALKONIUM CHLORIDE\CHLORHEXIDINE HYDROCHLORIDE\ISOPROPYL MYRISTATE\PARAFFIN
     Indication: PRODUCT USED FOR UNKNOWN INDICATION
     Route: 061
  65. CLARITHROMYCIN. [Concomitant]
     Active Substance: CLARITHROMYCIN
     Dosage: 500 MG
     Route: 048
     Dates: start: 20190415
  66. CLARITHROMYCIN. [Concomitant]
     Active Substance: CLARITHROMYCIN
     Dosage: 500 MG
     Route: 048
     Dates: start: 20180701, end: 20180711
  67. CITALOPRAM [Concomitant]
     Active Substance: CITALOPRAM HYDROBROMIDE
     Indication: PRODUCT USED FOR UNKNOWN INDICATION
     Dosage: 40 MG, QD
     Route: 048
     Dates: start: 2005
  68. DIAZEPAM. [Concomitant]
     Active Substance: DIAZEPAM
     Dosage: 2 MG
     Route: 048
     Dates: start: 20180105
  69. PEPTAC [Concomitant]
     Active Substance: RANITIDINE HYDROCHLORIDE
     Indication: DYSPEPSIA
     Dosage: 15 ML
     Route: 048
  70. HYOSCINE BUTYLBROMIDE [Concomitant]
     Active Substance: BUTYLSCOPOLAMINE BROMIDE
     Indication: PRODUCT USED FOR UNKNOWN INDICATION
     Dosage: 30 MG, QD
     Route: 048
     Dates: start: 20181222
  71. VITAMIN D3 [Concomitant]
     Active Substance: CHOLECALCIFEROL
     Indication: PRODUCT USED FOR UNKNOWN INDICATION
     Dosage: 400 IU, QD
     Route: 048
     Dates: start: 20150827
  72. PARACETAMOL [Concomitant]
     Active Substance: ACETAMINOPHEN
     Indication: PRODUCT USED FOR UNKNOWN INDICATION
     Dosage: 500 MG
     Route: 048
     Dates: start: 201504
  73. BLOOD [Concomitant]
     Active Substance: WHOLE BLOOD
     Dosage: 2 UNIT
     Route: 042
     Dates: start: 20191112, end: 20191112
  74. CO?AMOXICLAV [Concomitant]
     Active Substance: AMOXICILLIN\CLAVULANATE POTASSIUM
     Indication: PRODUCT USED FOR UNKNOWN INDICATION
     Route: 048
     Dates: start: 20190322
  75. MORPHINE SULPHATE [Concomitant]
     Active Substance: MORPHINE SULFATE
     Dosage: 60 MG
     Route: 050
     Dates: start: 201504, end: 20160516
  76. AMOXICILLIN. [Concomitant]
     Active Substance: AMOXICILLIN
     Indication: LOWER RESPIRATORY TRACT INFECTION
     Dosage: UNK
     Route: 048
     Dates: start: 20170701, end: 20170706
  77. AMOXICILLIN. [Concomitant]
     Active Substance: AMOXICILLIN
     Indication: OSTEOMYELITIS
     Dosage: 3000 MG, QD
     Route: 048
     Dates: start: 20180701, end: 20180711
  78. AMOXICILLIN. [Concomitant]
     Active Substance: AMOXICILLIN
     Dosage: 1000 MG
     Route: 048
     Dates: start: 20180701, end: 20180711
  79. CLARITHROMYCIN. [Concomitant]
     Active Substance: CLARITHROMYCIN
     Dosage: 1000 MG, QD (TABLET)
     Route: 048
     Dates: start: 20190415
  80. GABAPENTIN. [Concomitant]
     Active Substance: GABAPENTIN
     Indication: PRODUCT USED FOR UNKNOWN INDICATION
     Dosage: 300 MG
     Route: 048
     Dates: start: 20151231
  81. TINZAPARIN [Concomitant]
     Active Substance: TINZAPARIN
     Indication: PRODUCT USED FOR UNKNOWN INDICATION
     Dosage: 20000 UNIT
     Route: 058
     Dates: start: 20190928
  82. TRASTUZUMAB EMTANSINE [Suspect]
     Active Substance: ADO-TRASTUZUMAB EMTANSINE
     Indication: PRODUCT USED FOR UNKNOWN INDICATION
     Dosage: 420 MG, Q4W
     Route: 042
     Dates: start: 20200118
  83. MORPHINE SULPHATE [Concomitant]
     Active Substance: MORPHINE SULFATE
     Dosage: 40 MG
     Route: 048
     Dates: start: 20150516, end: 201611
  84. MORPHINE SULPHATE [Concomitant]
     Active Substance: MORPHINE SULFATE
     Dosage: 10 MG
     Route: 048
     Dates: start: 20171224
  85. CLARITHROMYCIN. [Concomitant]
     Active Substance: CLARITHROMYCIN
     Dosage: 500 MG
     Route: 048
     Dates: start: 20180701, end: 20180711

REACTIONS (1)
  - Cellulitis [Recovered/Resolved]

NARRATIVE: CASE EVENT DATE: 20190927
